FAERS Safety Report 8992956 (Version 2)
Quarter: 2013Q1

REPORT INFORMATION
  Report Type: Spontaneous
  Country: CL (occurrence: CL)
  Receive Date: 20130102
  Receipt Date: 20130107
  Transmission Date: 20140127
  Serious: Yes (Death, Hospitalization, Other)
  Sender: FDA-Public Use
  Company Number: PHHY2012CL095321

PATIENT
  Age: 54 Year
  Sex: Male

DRUGS (2)
  1. GLIVEC [Suspect]
     Indication: GASTROINTESTINAL STROMAL TUMOUR
     Dosage: 400 MG, Q12H
     Route: 048
  2. GLIVEC [Suspect]
     Dosage: 800 MG,
     Route: 048
     Dates: end: 20121228

REACTIONS (8)
  - Intestinal obstruction [Fatal]
  - Gastrointestinal stromal tumour [Fatal]
  - Malignant neoplasm progression [Fatal]
  - Abdominal mass [Not Recovered/Not Resolved]
  - Abdominal pain upper [Unknown]
  - Abdominal pain [Not Recovered/Not Resolved]
  - Nausea [Not Recovered/Not Resolved]
  - Vomiting [Not Recovered/Not Resolved]
